FAERS Safety Report 15127153 (Version 1)
Quarter: 2018Q3

REPORT INFORMATION
  Report Type: Spontaneous
  Country: US (occurrence: US)
  Receive Date: 20180614
  Receipt Date: 20180614
  Transmission Date: 20181010
  Serious: Yes (Hospitalization)
  Sender: FDA-Public Use
  Company Number: None

PATIENT
  Age: 75 Year
  Sex: Male
  Weight: 62.8 kg

DRUGS (3)
  1. BENDAMUSTINE [Concomitant]
     Active Substance: BENDAMUSTINE
  2. RITUXIMAB. [Concomitant]
     Active Substance: RITUXIMAB
  3. LIPOSOMAL VINCRISTINE 2.04 MG/M2 [Suspect]
     Active Substance: VINCRISTINE
     Indication: NON-HODGKIN^S LYMPHOMA
     Route: 042

REACTIONS (2)
  - Constipation [None]
  - Pyrexia [None]

NARRATIVE: CASE EVENT DATE: 20180612
